FAERS Safety Report 5219509-6 (Version None)
Quarter: 2007Q1

REPORT INFORMATION
  Report Type: 
  Country: None (occurrence: None)
  Receive Date: 20070125
  Receipt Date: 20061109
  Transmission Date: 20070707
  Serious: Yes (Death, Hospitalization)
  Sender: FDA-Public Use
  Company Number: US-PFIZER INC-2006140368

PATIENT
  Age: 29 Year
  Sex: Female

DRUGS (1)
  1. INSULIN HUMAN [Suspect]
     Dosage: TEXT:UNKNOWN
     Route: 051

REACTIONS (3)
  - COMPLETED SUICIDE [None]
  - RENAL FAILURE [None]
  - RHABDOMYOLYSIS [None]
